APPROVED DRUG PRODUCT: HYDROCORTISONE
Active Ingredient: HYDROCORTISONE
Strength: 100MG/60ML
Dosage Form/Route: ENEMA;RECTAL
Application: A074171 | Product #001
Applicant: TEVA PHARMACEUTICALS USA
Approved: May 27, 1994 | RLD: No | RS: No | Type: DISCN